FAERS Safety Report 15764520 (Version 1)
Quarter: 2018Q4

REPORT INFORMATION
  Report Type: Spontaneous
  Country: CA (occurrence: CA)
  Receive Date: 20181227
  Receipt Date: 20181227
  Transmission Date: 20190205
  Serious: Yes (Other)
  Sender: FDA-Public Use
  Company Number: CA-TEVA-2018-CA-990934

PATIENT
  Age: 62 Year
  Sex: Female

DRUGS (12)
  1. CALCIUM [Concomitant]
     Active Substance: CALCIUM
  2. HYDROCORTISONE. [Suspect]
     Active Substance: HYDROCORTISONE
     Indication: PRODUCT USED FOR UNKNOWN INDICATION
     Route: 065
  3. CORTEF [Suspect]
     Active Substance: HYDROCORTISONE
     Indication: PRODUCT USED FOR UNKNOWN INDICATION
     Route: 065
  4. PASIREOTIDE DIASPARTATE [Suspect]
     Active Substance: PASIREOTIDE DIASPARTATE
     Dosage: 1.2 MILLIGRAM DAILY;
     Route: 030
  5. IRBESARTAN HCT [Concomitant]
     Active Substance: HYDROCHLOROTHIAZIDE\IRBESARTAN
  6. IRON [Concomitant]
     Active Substance: IRON
     Route: 065
  7. PASIREOTIDE DIASPARTATE [Suspect]
     Active Substance: PASIREOTIDE DIASPARTATE
     Indication: PITUITARY-DEPENDENT CUSHING^S SYNDROME
     Dosage: .6 MILLIGRAM DAILY;
     Route: 030
  8. ERGOCALCIFEROL. [Concomitant]
     Active Substance: ERGOCALCIFEROL
     Route: 065
  9. UREA. [Concomitant]
     Active Substance: UREA
     Route: 065
  10. METFORMIN HYDROCHLORIDE/SITAGLIPTIN PHOSPHATE MONOHYDRATE [Concomitant]
     Active Substance: METFORMIN HYDROCHLORIDE\SITAGLIPTIN PHOSPHATE
     Route: 065
  11. VITAMIN D/00107901/ [Concomitant]
  12. PANTOPRAZOLE [Suspect]
     Active Substance: PANTOPRAZOLE
     Indication: PRODUCT USED FOR UNKNOWN INDICATION
     Route: 065

REACTIONS (24)
  - Abnormal faeces [Recovered/Resolved]
  - Asthenia [Recovered/Resolved]
  - Dysphagia [Recovered/Resolved]
  - Blood glucose abnormal [Recovered/Resolved]
  - Fatigue [Recovered/Resolved]
  - Furuncle [Recovered/Resolved]
  - Hydrothorax [Recovered/Resolved]
  - Nausea [Recovered/Resolved]
  - Somnolence [Recovered/Resolved]
  - Abdominal pain lower [Recovered/Resolved]
  - Dizziness [Recovered/Resolved]
  - Frequent bowel movements [Recovered/Resolved]
  - Abdominal pain [Recovered/Resolved]
  - Peripheral swelling [Recovered/Resolved]
  - Vomiting [Recovered/Resolved]
  - Weight increased [Recovered/Resolved]
  - Abdominal pain upper [Recovered/Resolved]
  - Injection site pain [Recovered/Resolved]
  - Gait inability [Recovered/Resolved]
  - Headache [Recovered/Resolved]
  - Libido increased [Recovered/Resolved]
  - Dyspnoea [Recovered/Resolved]
  - Dyspnoea exertional [Recovered/Resolved]
  - Pain [Recovered/Resolved]
